FAERS Safety Report 18114203 (Version 1)
Quarter: 2020Q3

REPORT INFORMATION
  Report Type: Spontaneous
  Country: BE (occurrence: BE)
  Receive Date: 20200805
  Receipt Date: 20200805
  Transmission Date: 20201103
  Serious: Yes (Other)
  Sender: FDA-Public Use
  Company Number: BE-ASTRAZENECA-2020SE94729

PATIENT
  Age: 67 Year
  Sex: Male

DRUGS (7)
  1. LITHIUM CARBONATE. [Suspect]
     Active Substance: LITHIUM CARBONATE
     Indication: BIPOLAR DISORDER
     Dosage: 750 MG DAILY FOR SEVERAL DECADES
     Route: 065
  2. ATORVASTATIN [Concomitant]
     Active Substance: ATORVASTATIN
     Route: 065
  3. QUETIAPINE. [Suspect]
     Active Substance: QUETIAPINE
     Indication: BIPOLAR DISORDER
     Route: 048
  4. L?THYROXIN [Concomitant]
     Active Substance: LEVOTHYROXINE SODIUM
     Route: 065
  5. LOSARTAN. [Concomitant]
     Active Substance: LOSARTAN
     Route: 065
  6. TETRABENAZINE. [Concomitant]
     Active Substance: TETRABENAZINE
     Indication: DYSKINESIA
     Route: 065
  7. QUETIAPINE. [Suspect]
     Active Substance: QUETIAPINE
     Indication: BIPOLAR DISORDER
     Route: 048

REACTIONS (8)
  - Toxicity to various agents [Recovered/Resolved with Sequelae]
  - Akathisia [Recovered/Resolved]
  - Electrocardiogram QT prolonged [Recovered/Resolved]
  - Therapeutic response unexpected [Unknown]
  - Dyskinesia [Recovered/Resolved]
  - Ataxia [Recovered/Resolved]
  - Behaviour disorder [Not Recovered/Not Resolved]
  - Cognitive disorder [Not Recovered/Not Resolved]
